FAERS Safety Report 15325663 (Version 1)
Quarter: 2018Q3

REPORT INFORMATION
  Report Type: Spontaneous
  Country: FR (occurrence: FR)
  Receive Date: 20180828
  Receipt Date: 20180828
  Transmission Date: 20181010
  Serious: Yes (Death, Other)
  Sender: FDA-Public Use
  Company Number: PHHY2017FR143041

PATIENT
  Age: 38 Year
  Sex: Female

DRUGS (15)
  1. MYCOPHENOLATE MOFETIL. [Suspect]
     Active Substance: MYCOPHENOLATE MOFETIL
     Indication: IMMUNOSUPPRESSANT DRUG THERAPY
  2. PREDNISONE. [Suspect]
     Active Substance: PREDNISONE
     Indication: SKIN GRAFT
     Dosage: 5 MG/KG, UNK
     Route: 065
  3. PREDNISONE. [Suspect]
     Active Substance: PREDNISONE
     Indication: PROPHYLAXIS AGAINST TRANSPLANT REJECTION
  4. ANTITHYMOCYTE IMMUNOGLOBULIN [Suspect]
     Active Substance: THYMOCYTE IMMUNE GLOBULIN NOS
     Indication: SKIN GRAFT
     Dosage: UNK
     Route: 065
  5. SIROLIMUS. [Suspect]
     Active Substance: SIROLIMUS
     Indication: IMMUNOSUPPRESSANT DRUG THERAPY
  6. SOLIRIS [Suspect]
     Active Substance: ECULIZUMAB
     Indication: TRANSPLANT REJECTION
  7. TACROLIMUS. [Suspect]
     Active Substance: TACROLIMUS
     Indication: PROPHYLAXIS AGAINST TRANSPLANT REJECTION
  8. MYCOPHENOLATE MOFETIL. [Suspect]
     Active Substance: MYCOPHENOLATE MOFETIL
     Indication: PROPHYLAXIS AGAINST TRANSPLANT REJECTION
  9. ANTITHYMOCYTE IMMUNOGLOBULIN [Suspect]
     Active Substance: THYMOCYTE IMMUNE GLOBULIN NOS
     Indication: IMMUNOSUPPRESSANT DRUG THERAPY
  10. SIROLIMUS. [Suspect]
     Active Substance: SIROLIMUS
     Indication: SKIN GRAFT
     Route: 065
  11. MYCOPHENOLATE MOFETIL. [Suspect]
     Active Substance: MYCOPHENOLATE MOFETIL
     Indication: SKIN GRAFT
     Dosage: 1.5 G, QD
     Route: 065
  12. TACROLIMUS. [Suspect]
     Active Substance: TACROLIMUS
     Indication: SKIN GRAFT
     Dosage: 3 MG, QD
     Route: 065
  13. TACROLIMUS. [Suspect]
     Active Substance: TACROLIMUS
     Indication: IMMUNOSUPPRESSANT DRUG THERAPY
  14. PREDNISONE. [Suspect]
     Active Substance: PREDNISONE
     Indication: IMMUNOSUPPRESSANT DRUG THERAPY
  15. SOLIRIS [Suspect]
     Active Substance: ECULIZUMAB
     Indication: PROPHYLAXIS
     Dosage: 300 MG, UNK
     Route: 065

REACTIONS (18)
  - Cyanosis [Fatal]
  - Skin necrosis [Fatal]
  - Reperfusion injury [Fatal]
  - Graft thrombosis [Fatal]
  - Dyskinesia [Fatal]
  - Product use in unapproved indication [Fatal]
  - Deformity [Fatal]
  - Small cell lung cancer [Fatal]
  - Soft tissue disorder [Fatal]
  - Acute graft versus host disease in skin [Fatal]
  - Graft ischaemia [Fatal]
  - Oedema [Fatal]
  - Rash maculo-papular [Fatal]
  - Dysarthria [Fatal]
  - Necrosis [Fatal]
  - Graft loss [Fatal]
  - Small cell lung cancer recurrent [Fatal]
  - Off label use [Fatal]

NARRATIVE: CASE EVENT DATE: 201403
